FAERS Safety Report 9117789 (Version 1)
Quarter: 2013Q1

REPORT INFORMATION
  Report Type: Spontaneous
  Country: US (occurrence: US)
  Receive Date: 20130125
  Receipt Date: 20130125
  Transmission Date: 20140127
  Serious: Yes (Other)
  Sender: FDA-Public Use
  Company Number: US-RB-048939-13

PATIENT
  Age: 32 Year
  Sex: Female

DRUGS (5)
  1. SUBOXONE TABLET [Suspect]
     Route: 060
     Dates: start: 2006, end: 2011
  2. SUBOXONE TABLET [Suspect]
     Dosage: TAPERED TO 2 MG DAILY
     Route: 060
     Dates: start: 2011, end: 201108
  3. SUBOXONE TABLET [Suspect]
     Route: 060
     Dates: start: 201108
  4. SUBOXONE TABLET [Suspect]
     Indication: DRUG DEPENDENCE
     Dosage: TAKEN BY THE PATIENT^S PARTNER/FATHER OF BABY
     Route: 065
     Dates: start: 201012, end: 20110909
  5. PRENATAL VITAMINS [Concomitant]
     Indication: PREGNANCY
     Route: 065

REACTIONS (6)
  - Exposure during pregnancy [Recovered/Resolved]
  - Exposure via body fluid [Recovered/Resolved]
  - Drug withdrawal syndrome [Recovered/Resolved]
  - Insomnia [Recovered/Resolved]
  - Gestational hypertension [Recovered/Resolved]
  - Foetal distress syndrome [Recovered/Resolved]
